FAERS Safety Report 12998034 (Version 1)
Quarter: 2016Q4

REPORT INFORMATION
  Report Type: Not Available
  Country: SE (occurrence: SE)
  Receive Date: 20161205
  Receipt Date: 20161205
  Transmission Date: 20170207
  Serious: Yes (Hospitalization)
  Sender: FDA-Public Use
  Company Number: SE-PURDUE PHARMA-GBR-2016-0042009

PATIENT
  Age: 21 Year
  Sex: Male
  Weight: 84 kg

DRUGS (3)
  1. TARGINIQ ER [Suspect]
     Active Substance: NALOXONE HYDROCHLORIDE\OXYCODONE HYDROCHLORIDE
     Indication: PRODUCT USED FOR UNKNOWN INDICATION
     Dosage: 4 DF (5 MG) SINGLE
     Route: 048
     Dates: start: 20130830, end: 20130830
  2. ALVEDON DOS [Suspect]
     Active Substance: ACETAMINOPHEN
     Indication: PRODUCT USED FOR UNKNOWN INDICATION
     Dosage: 14.63 G, (22 TABLETS)  SINGLE
     Route: 065
     Dates: start: 20130830, end: 20130830
  3. ALCOHOL. [Suspect]
     Active Substance: ALCOHOL
     Indication: PRODUCT USED FOR UNKNOWN INDICATION
     Route: 048

REACTIONS (4)
  - Overdose [Recovered/Resolved]
  - Toxicity to various agents [Recovered/Resolved]
  - Analgesic drug level increased [Unknown]
  - Intentional self-injury [Recovered/Resolved]

NARRATIVE: CASE EVENT DATE: 20130830
